FAERS Safety Report 13106428 (Version 1)
Quarter: 2017Q1

REPORT INFORMATION
  Report Type: Spontaneous
  Country: IN (occurrence: IN)
  Receive Date: 20170111
  Receipt Date: 20170111
  Transmission Date: 20170428
  Serious: Yes (Death, Other)
  Sender: FDA-Public Use
  Company Number: IN-BAUSCH-BL-2017-000713

PATIENT
  Age: 65 Year
  Sex: Male

DRUGS (4)
  1. DEXAMETHASONE. [Suspect]
     Active Substance: DEXAMETHASONE
     Indication: RENAL FAILURE
  2. BORTEZOMIB [Suspect]
     Active Substance: BORTEZOMIB
     Indication: RENAL FAILURE
  3. DEXAMETHASONE. [Suspect]
     Active Substance: DEXAMETHASONE
     Indication: PLASMA CELL MYELOMA
     Dosage: FIRST CYCLE DAY 1
     Route: 065
  4. BORTEZOMIB [Suspect]
     Active Substance: BORTEZOMIB
     Indication: PLASMA CELL MYELOMA
     Route: 065

REACTIONS (10)
  - General physical health deterioration [Unknown]
  - Tumour lysis syndrome [Unknown]
  - Irritability [Unknown]
  - Crepitations [Unknown]
  - Oxygen saturation decreased [Unknown]
  - Disorientation [Unknown]
  - Death [Fatal]
  - Metabolic acidosis [Unknown]
  - Dyspnoea [Unknown]
  - Dehydration [Unknown]
